FAERS Safety Report 25924766 (Version 1)
Quarter: 2025Q4

REPORT INFORMATION
  Report Type: Spontaneous
  Country: US (occurrence: None)
  Receive Date: 20251013
  Receipt Date: 20251013
  Transmission Date: 20260117
  Serious: Yes (Disabling)
  Sender: FDA-CTU
  Company Number: None

PATIENT
  Age: 18 Year
  Sex: Female
  Weight: 67.5 kg

DRUGS (1)
  1. ESCITALOPRAM OXALATE [Suspect]
     Active Substance: ESCITALOPRAM OXALATE
     Indication: Depression

REACTIONS (5)
  - Tachycardia [None]
  - Electric shock sensation [None]
  - Postural orthostatic tachycardia syndrome [None]
  - Dyspnoea [None]
  - Temperature intolerance [None]

NARRATIVE: CASE EVENT DATE: 20240615
